FAERS Safety Report 26041344 (Version 2)
Quarter: 2025Q4

REPORT INFORMATION
  Report Type: Spontaneous
  Country: JP (occurrence: JP)
  Receive Date: 20251113
  Receipt Date: 20251219
  Transmission Date: 20260118
  Serious: Yes (Hospitalization)
  Sender: EISAI
  Company Number: JP-Eisai-202510011_DVG_P_1

PATIENT
  Age: 16 Year
  Sex: Female

DRUGS (3)
  1. DAYVIGO [Suspect]
     Active Substance: LEMBOREXANT
     Indication: Insomnia
     Route: 048
  2. DAYVIGO [Suspect]
     Active Substance: LEMBOREXANT
     Dosage: FIFTY TABLETS OF DAYVIGO 10 MG
     Route: 048
     Dates: start: 20250216, end: 20250216
  3. ALCOHOL [Interacting]
     Active Substance: ALCOHOL
     Indication: Product used for unknown indication
     Dosage: DOSE AND FREQUENCY UNKNOWN

REACTIONS (5)
  - Intentional overdose [Unknown]
  - Suicide attempt [Unknown]
  - Altered state of consciousness [Recovered/Resolved]
  - Somnolence [Recovering/Resolving]
  - Alcohol interaction [Recovering/Resolving]

NARRATIVE: CASE EVENT DATE: 20250216
